FAERS Safety Report 4645102-X (Version None)
Quarter: 2005Q2

REPORT INFORMATION
  Report Type: 
  Country: None (occurrence: None)
  Receive Date: 20050426
  Receipt Date: 20040406
  Transmission Date: 20051028
  Serious: Yes (Other)
  Sender: FDA-Public Use
  Company Number: US-BRISTOL-MYERS SQUIBB COMPANY-12552949

PATIENT
  Age: 46 Year
  Sex: Male
  Weight: 91 kg

DRUGS (5)
  1. BUSPAR [Suspect]
     Indication: INSOMNIA
     Route: 048
  2. BUSPAR [Suspect]
     Indication: ANXIETY
     Route: 048
  3. BUSPAR [Suspect]
     Indication: BIPOLAR DISORDER
     Route: 048
  4. VALIUM [Concomitant]
  5. LAMICTAL [Concomitant]

REACTIONS (4)
  - DIZZINESS [None]
  - HUNGER [None]
  - INSOMNIA [None]
  - RENAL FAILURE [None]
